FAERS Safety Report 4581305-0 (Version None)
Quarter: 2005Q1

REPORT INFORMATION
  Report Type: 
  Country: None (occurrence: None)
  Receive Date: 20050214
  Receipt Date: 20040923
  Transmission Date: 20050727
  Serious: No
  Sender: FDA-Public Use
  Company Number: US-GLAXOSMITHKLINE-A0527117A

PATIENT
  Age: 45 Year
  Sex: Female
  Weight: 72.7 kg

DRUGS (5)
  1. LAMICTAL [Suspect]
     Indication: BIPOLAR II DISORDER
     Dosage: 25MG PER DAY
     Route: 048
     Dates: start: 20040909, end: 20040925
  2. PAXIL CR [Concomitant]
     Route: 048
  3. WELLBUTRIN XL [Concomitant]
     Route: 048
  4. ABILIFY [Concomitant]
     Route: 065
  5. ADDERALL XR 10 [Concomitant]
     Route: 065

REACTIONS (1)
  - RASH MACULAR [None]
